FAERS Safety Report 5551802-X (Version None)
Quarter: 2007Q4

REPORT INFORMATION
  Report Type: 
  Country: None (occurrence: None)
  Receive Date: 20071212
  Receipt Date: 20071114
  Transmission Date: 20080405
  Serious: No
  Sender: FDA-Public Use
  Company Number: US-BOEHRINGER INGELHEIM PHARMACEUTICALS, INC.-2007-BP-23068BP

PATIENT
  Sex: Female

DRUGS (5)
  1. MIRAPEX [Suspect]
     Indication: RESTLESS LEGS SYNDROME
     Route: 048
     Dates: start: 20070101
  2. ZOLOFT [Concomitant]
     Indication: DEPRESSION
  3. SYNTHROID [Concomitant]
     Indication: HYPOTHYROIDISM
  4. PRILOSEC [Concomitant]
     Indication: GASTROOESOPHAGEAL REFLUX DISEASE
  5. BENTYL [Concomitant]
     Indication: GASTROINTESTINAL MOTILITY DISORDER

REACTIONS (8)
  - ACTIVITIES OF DAILY LIVING IMPAIRED [None]
  - DISTURBANCE IN ATTENTION [None]
  - DIZZINESS [None]
  - FATIGUE [None]
  - LIMB DISCOMFORT [None]
  - MOOD ALTERED [None]
  - MOVEMENT DISORDER [None]
  - SLEEP DISORDER [None]
